FAERS Safety Report 6774133-9 (Version None)
Quarter: 2010Q2

REPORT INFORMATION
  Report Type: 
  Country: None (occurrence: None)
  Receive Date: 20100617
  Receipt Date: 20100607
  Transmission Date: 20101027
  Serious: Yes (Hospitalization, Other)
  Sender: FDA-Public Use
  Company Number: JP-JNJFOC-20100603165

PATIENT
  Age: 39 Year
  Sex: Female

DRUGS (1)
  1. DOXIL [Suspect]
     Indication: OVARIAN CANCER RECURRENT
     Dosage: 3 COURSES
     Route: 042

REACTIONS (3)
  - CHROMATURIA [None]
  - GASTROINTESTINAL HAEMORRHAGE [None]
  - PAIN [None]
